FAERS Safety Report 20447945 (Version 1)
Quarter: 2022Q1

REPORT INFORMATION
  Report Type: Report from Study
  Country: CO (occurrence: CO)
  Receive Date: 20220209
  Receipt Date: 20220209
  Transmission Date: 20220424
  Serious: Yes (Hospitalization, Other)
  Sender: FDA-Public Use
  Company Number: CO-SA-SAC20220203000395

PATIENT

DRUGS (1)
  1. PRALUENT [Suspect]
     Active Substance: ALIROCUMAB
     Indication: Ischaemic cardiomyopathy
     Dosage: 75 MG, Q15D
     Dates: start: 20211210

REACTIONS (2)
  - COVID-19 [Recovering/Resolving]
  - Kidney infection [Recovering/Resolving]
